FAERS Safety Report 10242005 (Version 1)
Quarter: 2014Q1

REPORT INFORMATION
  Report Type: Spontaneous
  Country: US (occurrence: None)
  Receive Date: 20140306
  Receipt Date: 20140306
  Transmission Date: 20141002
  Serious: Yes (Other)
  Sender: FDA-Public Use
  Company Number: 163-21880-13060832

PATIENT
  Age: 72 Year
  Sex: Female
  Weight: 68 kg

DRUGS (28)
  1. REVLIMID (LENALIDOMIDE) (25 MILLIGRAM, CAPSULES) [Suspect]
     Indication: PLASMA CELL MYELOMA
     Dosage: 25 MG, 21 IN 29 D, PO
     Route: 048
     Dates: start: 20121025
  2. UNIFLEX FEN (BETAMETHASONE VALERATE) [Concomitant]
  3. PHILLIP^S COLON HELALTH (LACTOBAC) [Concomitant]
  4. LIPITOR (ATROVASTATIN) [Concomitant]
  5. SINGULAIR (MONTELUKAST) 10MG [Concomitant]
  6. FLUTICASONE [Concomitant]
  7. DEXAMETHASONE [Concomitant]
  8. GABAPENTIN [Concomitant]
  9. ADVAIR DISKUS [Concomitant]
  10. ATACAND (CANDESARTAN CILEXETIL) [Concomitant]
  11. METROCREAM (METRONIDAZOLE) [Concomitant]
  12. COCOA BUTTER (OTHER THERAPEUTIC PRODUCTS) [Concomitant]
  13. VITAMIN B COMPLEX (B-KOMPLEX) [Concomitant]
  14. BIOTIN (BIOTIN) [Concomitant]
  15. ASPIRIN ADULT (ACETYLSALICYLIC ACID) [Concomitant]
  16. PV SWEET OIL (OTHER THERAPEUTIC PRODUCTS) [Concomitant]
  17. LACTAID (TILACTASE) [Concomitant]
  18. HYALURONIC ACID (HYALURONIC ACID) [Concomitant]
  19. GLUCOSAMIDE CHONDROITAN MSM (FLEX-A-MIN) [Concomitant]
  20. VITAMIN D2 (ERGOCALCIFEROL) [Concomitant]
  21. PLEXION CLEANSER (SULFACET-R) [Concomitant]
  22. MUCINEX COLD (GUAIFENESIN) [Concomitant]
  23. TONAIL FUNGUS THERAPY (THER THERAPEUTIC PRODUCTS) [Concomitant]
  24. ERYTHRI=OMYCIN (ERYTHROMYCIN) [Concomitant]
  25. PHOSPHASAL (UTA) [Concomitant]
  26. VALTREX (VALACICLOVIR HYDROCHLORIDE) [Concomitant]
  27. UROGESIC BLUE [Concomitant]
  28. CENTRUM (CENTRUM) (TABLETS) [Concomitant]

REACTIONS (2)
  - Rash erythematous [None]
  - Vascular injury [None]
